FAERS Safety Report 11792399 (Version 3)
Quarter: 2016Q1

REPORT INFORMATION
  Report Type: Spontaneous
  Country: US (occurrence: US)
  Receive Date: 20151202
  Receipt Date: 20160304
  Transmission Date: 20160525
  Serious: Yes (Hospitalization)
  Sender: FDA-Public Use
  Company Number: US-UCBSA-2015038104

PATIENT
  Age: 70 Year
  Sex: Male
  Weight: 110.2 kg

DRUGS (6)
  1. VITAMIN D3 [Concomitant]
     Active Substance: CHOLECALCIFEROL
     Indication: SUPPLEMENTATION THERAPY
     Dosage: 1000 IU, ONCE DAILY (QD)
     Route: 048
  2. NEUPRO [Suspect]
     Active Substance: ROTIGOTINE
     Indication: PARKINSON^S DISEASE
     Dosage: 4 MG, EV 2 DAYS (QOD)
     Route: 062
     Dates: start: 20150824
  3. CARBIDOPA/LEVODOPA [Concomitant]
     Active Substance: CARBIDOPA\LEVODOPA
     Indication: PARKINSON^S DISEASE
     Dosage: 2 DF (25/100MG), 3X/DAY (TID)
     Route: 048
  4. BACLOFEN. [Concomitant]
     Active Substance: BACLOFEN
     Indication: PARKINSON^S DISEASE
     Dosage: 10 MG, ONCE DAILY (QD)
     Route: 048
  5. BENZATROPINE [Concomitant]
     Active Substance: BENZTROPINE
     Indication: PARKINSON^S DISEASE
     Dosage: 3 DF, 2X/DAY (BID)
     Route: 048
  6. NORCO [Concomitant]
     Active Substance: ACETAMINOPHEN\HYDROCODONE BITARTRATE
     Indication: PAIN
     Dosage: UNK, AS NEEDED (PRN)
     Route: 048

REACTIONS (1)
  - Medical device change [Recovered/Resolved]

NARRATIVE: CASE EVENT DATE: 20151123
